FAERS Safety Report 9799701 (Version 2)
Quarter: 2014Q1

REPORT INFORMATION
  Report Type: Spontaneous
  Country: US (occurrence: US)
  Receive Date: 20140106
  Receipt Date: 20140106
  Transmission Date: 20141002
  Serious: No
  Sender: FDA-Public Use
  Company Number: US-GILEAD-2010-0031942

PATIENT
  Age: 60 Year
  Sex: Male
  Weight: 99.79 kg

DRUGS (16)
  1. LETAIRIS [Suspect]
     Indication: PULMONARY ARTERIAL HYPERTENSION
     Route: 048
     Dates: start: 20100901
  2. ADCIRCA [Concomitant]
     Indication: PULMONARY ARTERIAL HYPERTENSION
  3. REMODULIN [Concomitant]
     Indication: PULMONARY ARTERIAL HYPERTENSION
  4. DIGOXIN [Concomitant]
  5. LASIX [Concomitant]
  6. COUMADIN [Concomitant]
  7. GEMFIBROZIL [Concomitant]
  8. LIPITOR [Concomitant]
  9. PRAVASTATIN [Concomitant]
  10. FLONASE [Concomitant]
  11. BUDESONIDE [Concomitant]
  12. AYR SALINE [Concomitant]
  13. PANTOPRAZOLE [Concomitant]
  14. LOPERAMIDE [Concomitant]
  15. HYDROCODONE APAP [Concomitant]
  16. ALDACTONE [Concomitant]

REACTIONS (3)
  - Chest discomfort [Unknown]
  - Nasal congestion [Unknown]
  - Dyspnoea [Unknown]
